FAERS Safety Report 15103494 (Version 1)
Quarter: 2018Q3

REPORT INFORMATION
  Report Type: Spontaneous
  Country: US (occurrence: US)
  Receive Date: 20180703
  Receipt Date: 20180703
  Transmission Date: 20181010
  Serious: No
  Sender: FDA-Public Use
  Company Number: US-SEBELA IRELAND LIMITED-2017SEB00457

PATIENT
  Sex: Female
  Weight: 77.98 kg

DRUGS (2)
  1. LOTRONEX [Suspect]
     Active Substance: ALOSETRON HYDROCHLORIDE
     Indication: INTESTINAL RESECTION
     Dosage: 0.5 MG, ONCE
     Route: 048
     Dates: start: 2004, end: 2004
  2. TRAMADOL. [Suspect]
     Active Substance: TRAMADOL
     Dosage: 300 MG, 1X/DAY

REACTIONS (3)
  - Off label use [Recovered/Resolved]
  - Palpitations [Recovered/Resolved]
  - Constipation [Recovered/Resolved]

NARRATIVE: CASE EVENT DATE: 2004
